FAERS Safety Report 12248179 (Version 1)
Quarter: 2016Q2

REPORT INFORMATION
  Report Type: Spontaneous
  Country: None (occurrence: None)
  Receive Date: 20160407
  Receipt Date: 20160407
  Transmission Date: 20160815
  Serious: Yes (Hospitalization)
  Sender: FDA-Public Use
  Company Number: None

PATIENT
  Age: 51 Year
  Sex: Male
  Weight: 115 kg

DRUGS (2)
  1. OXYCODONE, UNKNOWN [Suspect]
     Active Substance: OXYCODONE
     Indication: PAIN
     Route: 048
     Dates: start: 20160326, end: 20160326
  2. HYDROCODONE, UNKNOWN [Suspect]
     Active Substance: HYDROCODONE
     Indication: PAIN
     Route: 048
     Dates: start: 20160306, end: 20160306

REACTIONS (7)
  - Dyspnoea [None]
  - Peripheral swelling [None]
  - Swollen tongue [None]
  - Chest discomfort [None]
  - Rash [None]
  - Urticaria [None]
  - Lip swelling [None]

NARRATIVE: CASE EVENT DATE: 20160326
